FAERS Safety Report 6976429-4 (Version None)
Quarter: 2010Q3

REPORT INFORMATION
  Report Type: 
  Country: None (occurrence: None)
  Receive Date: 20100910
  Receipt Date: 20100831
  Transmission Date: 20110219
  Serious: Yes (Other)
  Sender: FDA-Public Use
  Company Number: DE-SANOFI-AVENTIS-2010SA052431

PATIENT
  Sex: Female

DRUGS (1)
  1. ISCOVER [Suspect]
     Route: 048
     Dates: start: 20080401

REACTIONS (1)
  - MACULAR DEGENERATION [None]
